FAERS Safety Report 9682644 (Version 1)
Quarter: 2013Q4

REPORT INFORMATION
  Report Type: Spontaneous
  Country: US (occurrence: US)
  Receive Date: 20131112
  Receipt Date: 20131112
  Transmission Date: 20140711
  Serious: Yes (Other)
  Sender: FDA-Public Use
  Company Number: US-BAYER-2013-136624

PATIENT
  Age: 78 Year
  Sex: Female
  Weight: 68.04 kg

DRUGS (6)
  1. XARELTO [Suspect]
     Indication: CEREBROVASCULAR ACCIDENT PROPHYLAXIS
     Route: 048
     Dates: start: 2013, end: 201310
  2. XARELTO [Suspect]
     Indication: ATRIAL FIBRILLATION
     Route: 048
     Dates: start: 2013, end: 201310
  3. CIPRO [Suspect]
     Indication: URINARY TRACT INFECTION
     Route: 065
     Dates: start: 20131018, end: 201310
  4. ZESTRIL [Concomitant]
     Indication: BLOOD PRESSURE MANAGEMENT
     Dosage: 12.5 MG, BID
     Route: 048
  5. ATENOLOL [Concomitant]
     Indication: CARDIAC DISORDER
     Dosage: 25 MG, BID
     Route: 048
  6. DIGOXIN [Concomitant]
     Indication: CARDIAC DISORDER
     Dosage: 250 ?G, UNK
     Route: 048

REACTIONS (3)
  - Blood urine present [Recovered/Resolved]
  - Urinary tract infection [Unknown]
  - Product packaging issue [Unknown]
